FAERS Safety Report 5989397-9 (Version None)
Quarter: 2008Q4

REPORT INFORMATION
  Report Type: 
  Country: None (occurrence: None)
  Receive Date: 20081210
  Receipt Date: 20081128
  Transmission Date: 20090506
  Serious: Yes (Other)
  Sender: FDA-Public Use
  Company Number: JP-ROCHE-598765

PATIENT
  Sex: Female

DRUGS (11)
  1. FLUMAZENIL [Suspect]
     Indication: ANAESTHESIA
     Route: 042
     Dates: start: 20081104, end: 20081104
  2. ROCURONIUM BROMIDE [Suspect]
     Indication: ANAESTHESIA
     Route: 042
     Dates: start: 20081104, end: 20081104
  3. DIPRIVAN [Concomitant]
     Indication: ANAESTHESIA
     Route: 042
     Dates: start: 20081104, end: 20081104
  4. FENTANEST [Concomitant]
     Indication: ANAESTHESIA
     Route: 042
     Dates: start: 20081104, end: 20081104
  5. ATROPINE [Concomitant]
     Indication: ANAESTHESIA
     Route: 042
     Dates: start: 20081104, end: 20081104
  6. VAGOSTIGMIN [Concomitant]
     Indication: ANAESTHESIA
     Route: 042
     Dates: start: 20081104, end: 20081104
  7. ROPION [Concomitant]
     Indication: ANAESTHESIA
     Route: 042
     Dates: start: 20081104, end: 20081104
  8. PRIMPERAN TAB [Concomitant]
     Route: 042
     Dates: start: 20081104, end: 20081104
  9. ULTIVA [Concomitant]
     Indication: ANAESTHESIA
     Dates: start: 20081104, end: 20081104
  10. EPHEDRIN [Concomitant]
     Route: 042
     Dates: start: 20081104, end: 20081104
  11. XYLOCAINE [Concomitant]
     Dates: start: 20081104, end: 20081104

REACTIONS (1)
  - WHITE BLOOD CELL COUNT DECREASED [None]
